FAERS Safety Report 14821107 (Version 1)
Quarter: 2018Q2

REPORT INFORMATION
  Report Type: Spontaneous
  Country: DE (occurrence: DE)
  Receive Date: 20180427
  Receipt Date: 20180427
  Transmission Date: 20180711
  Serious: Yes (Hospitalization)
  Sender: FDA-Public Use
  Company Number: DE-VELOXIS PHARMACEUTICALS-2046741

PATIENT
  Age: 59 Year
  Sex: Male
  Weight: 88 kg

DRUGS (13)
  1. BUDESONIDE. [Concomitant]
     Active Substance: BUDESONIDE
  2. METOPROLOL. [Concomitant]
     Active Substance: METOPROLOL
  3. ENOXAPARIN [Concomitant]
     Active Substance: ENOXAPARIN
  4. MAGNESIUM [Concomitant]
     Active Substance: MAGNESIUM
  5. ENVARSUS XR [Suspect]
     Active Substance: TACROLIMUS
     Indication: PRODUCT USED FOR UNKNOWN INDICATION
     Route: 048
  6. COTRIM [Concomitant]
     Active Substance: SULFAMETHOXAZOLE\TRIMETHOPRIM
  7. PREDNISOLON /00016201/ [Suspect]
     Active Substance: PREDNISOLONE
     Route: 048
  8. POSACONAZOLE [Concomitant]
     Active Substance: POSACONAZOLE
  9. AMLODIPINE [Concomitant]
     Active Substance: AMLODIPINE BESYLATE
  10. ACICLOVIR [Concomitant]
     Active Substance: ACYCLOVIR
  11. CEFUROXIM [Concomitant]
     Active Substance: CEFUROXIME
  12. PANTOPRAZOL [Concomitant]
     Active Substance: PANTOPRAZOLE SODIUM
  13. LINEZOLID. [Concomitant]
     Active Substance: LINEZOLID

REACTIONS (4)
  - Back pain [Unknown]
  - B-cell lymphoma [Unknown]
  - Pyrexia [Unknown]
  - Psoas abscess [Unknown]
